FAERS Safety Report 18330003 (Version 2)
Quarter: 2020Q4

REPORT INFORMATION
  Report Type: Spontaneous
  Country: AR (occurrence: AR)
  Receive Date: 20200930
  Receipt Date: 20201106
  Transmission Date: 20210113
  Serious: Yes (Death)
  Sender: FDA-Public Use
  Company Number: NVSC2020AR265132

PATIENT

DRUGS (1)
  1. SECUKINUMAB. [Suspect]
     Active Substance: SECUKINUMAB
     Indication: PSORIASIS
     Dosage: UNK (STARTED 1 YEAR AGO APPROXIMATELY)
     Route: 065

REACTIONS (1)
  - Acute myocardial infarction [Fatal]
